FAERS Safety Report 4826754-8 (Version None)
Quarter: 2005Q4

REPORT INFORMATION
  Report Type: 
  Country: None (occurrence: None)
  Receive Date: 20051014
  Receipt Date: 20050620
  Transmission Date: 20060501
  Serious: No
  Sender: FDA-Public Use
  Company Number: 2005SP001502

PATIENT
  Age: 62 Year
  Sex: Female
  Weight: 65.318 kg

DRUGS (7)
  1. LUNESTA [Suspect]
     Indication: INSOMNIA
     Dosage: 1 MG;HS;ORAL ; 2 MG;HS;ORAL ; 1.5 MG;HS;ORAL
     Route: 048
     Dates: start: 20050516, end: 20050516
  2. LUNESTA [Suspect]
     Indication: INSOMNIA
     Dosage: 1 MG;HS;ORAL ; 2 MG;HS;ORAL ; 1.5 MG;HS;ORAL
     Route: 048
     Dates: start: 20050517, end: 20050519
  3. LUNESTA [Suspect]
     Indication: INSOMNIA
     Dosage: 1 MG;HS;ORAL ; 2 MG;HS;ORAL ; 1.5 MG;HS;ORAL
     Route: 048
     Dates: start: 20050629
  4. DIGOXIN [Concomitant]
  5. ANTIHYPERTENSIVES [Concomitant]
  6. ESTRADIOL INJ [Concomitant]
  7. VITAMINS [Concomitant]

REACTIONS (6)
  - ABNORMAL DREAMS [None]
  - DRUG INEFFECTIVE [None]
  - FEELING COLD [None]
  - INSOMNIA [None]
  - THINKING ABNORMAL [None]
  - TREMOR [None]
